FAERS Safety Report 23723029 (Version 1)
Quarter: 2024Q2

REPORT INFORMATION
  Report Type: Spontaneous
  Country: US (occurrence: None)
  Receive Date: 20240408
  Receipt Date: 20240408
  Transmission Date: 20240716
  Serious: No
  Sender: FDA-Public Use
  Company Number: None

PATIENT
  Age: 69 Year
  Sex: Female

DRUGS (4)
  1. TADALAFIL [Suspect]
     Active Substance: TADALAFIL
     Indication: Pulmonary arterial hypertension
     Dosage: FREQUENCY : DAILY;?
     Route: 048
     Dates: start: 202203
  2. UPTRAVI (MNTH 2 TITR) [Concomitant]
  3. UPTRAVI (MNTH 1 TITR) [Concomitant]
  4. UPTRAVI [Concomitant]
     Active Substance: SELEXIPAG

REACTIONS (4)
  - Oxygen saturation decreased [None]
  - Pericardial effusion [None]
  - Pleural effusion [None]
  - Therapy interrupted [None]

NARRATIVE: CASE EVENT DATE: 20240320
